FAERS Safety Report 22618311 (Version 1)
Quarter: 2023Q2

REPORT INFORMATION
  Report Type: Report from Study
  Country: CA (occurrence: CA)
  Receive Date: 20230620
  Receipt Date: 20230620
  Transmission Date: 20230722
  Serious: No
  Sender: FDA-Public Use
  Company Number: CA-PFM-2022-07860

PATIENT
  Age: 35 Year
  Sex: Female

DRUGS (1)
  1. PROPRANOLOL HYDROCHLORIDE [Suspect]
     Active Substance: PROPRANOLOL HYDROCHLORIDE
     Indication: Product used for unknown indication
     Dosage: UNK
     Route: 065
     Dates: start: 201701, end: 2017

REACTIONS (4)
  - Drug intolerance [Unknown]
  - Drug ineffective [Unknown]
  - Product use issue [Unknown]
  - Off label use [Unknown]
